FAERS Safety Report 4461994-1 (Version None)
Quarter: 2004Q3

REPORT INFORMATION
  Report Type: 
  Country: None (occurrence: None)
  Receive Date: 20040924
  Receipt Date: 20040908
  Transmission Date: 20050211
  Serious: Yes (Life-Threatening, Hospitalization)
  Sender: FDA-Public Use
  Company Number: SP-2004-001837

PATIENT
  Age: 69 Year
  Sex: Male

DRUGS (1)
  1. OLMETEC [Suspect]
     Indication: HYPERTENSION
     Dosage: 10 MG QD PO
     Route: 048
     Dates: start: 20040713, end: 20040802

REACTIONS (1)
  - RENAL FAILURE [None]
